FAERS Safety Report 11515221 (Version 1)
Quarter: 2015Q3

REPORT INFORMATION
  Report Type: Spontaneous
  Country: IT (occurrence: IT)
  Receive Date: 20150916
  Receipt Date: 20150916
  Transmission Date: 20151125
  Serious: Yes (Other)
  Sender: FDA-Public Use
  Company Number: IT-TEVA-592911ACC

PATIENT
  Age: 62 Year
  Sex: Female
  Weight: 51 kg

DRUGS (6)
  1. TRIMETON - 10 MG/1 ML SOLUZIONE INIETTABILE [Concomitant]
     Indication: PRODUCT USED FOR UNKNOWN INDICATION
     Dosage: 10 MG
     Route: 042
     Dates: start: 20150727, end: 20150907
  2. CARBOPLATINO TEVA - FLACONE IV 5 ML 10 MG/ML - TEVA PHARMA B.V. [Suspect]
     Active Substance: CARBOPLATIN
     Indication: ENDOMETRIAL CANCER
     Dosage: 380 MG CYCLICAL
     Route: 042
     Dates: start: 20150727, end: 20150907
  3. DECADRON - 4 MG/1 ML SOLUZIONE INIETTABILE [Concomitant]
     Indication: INFLAMMATION
     Dosage: 20 MG
     Route: 042
     Dates: start: 20150727, end: 20150907
  4. ZANTAC - 50 MG/5 ML SOLUZIONE INIETTABILE [Concomitant]
     Indication: PROPHYLAXIS OF NAUSEA AND VOMITING
     Dosage: 50 MG
     Route: 042
     Dates: start: 20150727, end: 20150907
  5. ZOFRAN - 4 MG/2 ML SOLUZIONE INIETTABILE [Concomitant]
     Indication: PROPHYLAXIS OF NAUSEA AND VOMITING
     Dosage: 8 MG
     Route: 042
     Dates: start: 20150727, end: 20150907
  6. PACLITAXEL MYLAN GENERICS [Concomitant]
     Active Substance: PACLITAXEL
     Indication: ENDOMETRIAL CANCER
     Dosage: 200 MG, CONCENTRATE FOR SOLUTION FOR INJECTION
     Route: 042
     Dates: start: 20150727, end: 20150907

REACTIONS (4)
  - Nausea [Recovered/Resolved]
  - Pruritus [Recovered/Resolved]
  - Erythema [Recovered/Resolved]
  - Band sensation [Recovered/Resolved]

NARRATIVE: CASE EVENT DATE: 20150907
